FAERS Safety Report 6203757-2 (Version None)
Quarter: 2009Q2

REPORT INFORMATION
  Report Type: 
  Country: None (occurrence: None)
  Receive Date: 20090521
  Receipt Date: 20090512
  Transmission Date: 20091009
  Serious: Yes (Hospitalization)
  Sender: FDA-Public Use
  Company Number: 2009005175

PATIENT
  Age: 28 Year
  Sex: Male
  Weight: 97.5234 kg

DRUGS (5)
  1. PROVIGIL [Suspect]
     Indication: NARCOLEPSY
     Dosage: 200 MG (200 MG, 1 IN 1 D), ORAL, 1/2 TABLET AS NEEDED (100 MG, AS REQUIRED)
     Route: 048
     Dates: start: 20080801, end: 20081203
  2. PROVIGIL [Suspect]
     Indication: NARCOLEPSY
     Dosage: 200 MG (200 MG, 1 IN 1 D), ORAL, 1/2 TABLET AS NEEDED (100 MG, AS REQUIRED)
     Route: 048
     Dates: start: 20090201
  3. METOPROLOL (METOPROLOL) TABLETS [Concomitant]
  4. XYZOL (LEVOCETIRIZINE) TABLETS [Concomitant]
  5. MINOCYCLINE (MINOCYCLINE) (CAPSULES) [Concomitant]

REACTIONS (6)
  - ATRIOVENTRICULAR BLOCK SECOND DEGREE [None]
  - HEART RATE INCREASED [None]
  - HYPERVENTILATION [None]
  - INITIAL INSOMNIA [None]
  - SINUS TACHYCARDIA [None]
  - VENTRICULAR EXTRASYSTOLES [None]
